FAERS Safety Report 7583027-0 (Version None)
Quarter: 2011Q2

REPORT INFORMATION
  Report Type: 
  Country: None (occurrence: None)
  Receive Date: 20110527
  Receipt Date: 20110511
  Transmission Date: 20111010
  Serious: Yes (Hospitalization, Other)
  Sender: FDA-Public Use
  Company Number: US201002003678

PATIENT
  Age: 57 Year
  Sex: Male

DRUGS (8)
  1. BYETTA [Suspect]
     Dates: start: 20080601, end: 20080731
  2. ZESTRIL [Concomitant]
  3. EXENATIDE PEN (EXENATIDE PEN) [Concomitant]
  4. TYLENOL /SCH/ (PARACETAMOL) [Concomitant]
  5. GLUCOPHAGE [Concomitant]
  6. INSULIN (INSULIN) [Concomitant]
  7. LEXAPRO [Concomitant]
  8. PRAVASTATIN [Concomitant]

REACTIONS (2)
  - PANCREATITIS [None]
  - OFF LABEL USE [None]
